FAERS Safety Report 4641643-X (Version None)
Quarter: 2005Q2

REPORT INFORMATION
  Report Type: 
  Country: None (occurrence: None)
  Receive Date: 20050420
  Receipt Date: 20050401
  Transmission Date: 20051028
  Serious: Yes (Other)
  Sender: FDA-Public Use
  Company Number: B0376407A

PATIENT
  Sex: 0

DRUGS (3)
  1. VINORELBINE TARTRATE [Suspect]
     Indication: NON-SMALL CELL LUNG CANCER
     Dosage: 25 MG/M2 CYCLIC  DAYS
     Route: 042
  2. CISPLATIN [Suspect]
     Indication: NON-SMALL CELL LUNG CANCER
     Dosage: 80 MG/M2 CYCLIC   DAYS
     Route: 042
  3. RADIOTHERAPY [Suspect]
     Indication: NON-SMALL CELL LUNG CANCER

REACTIONS (2)
  - PATHOLOGICAL FRACTURE [None]
  - RIB FRACTURE [None]
